FAERS Safety Report 6543806-5 (Version None)
Quarter: 2010Q1

REPORT INFORMATION
  Report Type: 
  Country: None (occurrence: None)
  Receive Date: 20100119
  Receipt Date: 20100119
  Transmission Date: 20100710
  Serious: Yes (Other)
  Sender: FDA-Public Use
  Company Number: None

PATIENT
  Age: 34 Year
  Sex: Female
  Weight: 69.4003 kg

DRUGS (1)
  1. LAMICTAL [Suspect]
     Indication: AFFECTIVE DISORDER
     Dosage: 300MG ONCE A DAY PO
     Route: 048
     Dates: start: 20091001, end: 20091101

REACTIONS (6)
  - ACTIVITIES OF DAILY LIVING IMPAIRED [None]
  - AMNESIA [None]
  - BALANCE DISORDER [None]
  - CLUMSINESS [None]
  - FALL [None]
  - MEMORY IMPAIRMENT [None]
